FAERS Safety Report 19372273 (Version 1)
Quarter: 2021Q2

REPORT INFORMATION
  Report Type: Spontaneous
  Country: US (occurrence: US)
  Receive Date: 20210604
  Receipt Date: 20210604
  Transmission Date: 20210717
  Serious: Yes (Hospitalization)
  Sender: FDA-Public Use
  Company Number: None

PATIENT
  Age: 71 Year
  Sex: Female
  Weight: 69 kg

DRUGS (3)
  1. DEXAMETHASONE. [Suspect]
     Active Substance: DEXAMETHASONE
     Dates: end: 20210525
  2. LENALIDOMIDE (CC?5013) [Suspect]
     Active Substance: LENALIDOMIDE
     Dates: end: 20210530
  3. VELCADE [Suspect]
     Active Substance: BORTEZOMIB
     Dates: end: 20210525

REACTIONS (6)
  - Diarrhoea [None]
  - Hypoxia [None]
  - Streptococcus test positive [None]
  - Pneumonia viral [None]
  - Lung infiltration [None]
  - Oxygen saturation decreased [None]

NARRATIVE: CASE EVENT DATE: 20200530
